FAERS Safety Report 23267073 (Version 2)
Quarter: 2023Q4

REPORT INFORMATION
  Report Type: Spontaneous
  Country: JP (occurrence: JP)
  Receive Date: 20231206
  Receipt Date: 20231226
  Transmission Date: 20240110
  Serious: Yes (Death, Hospitalization, Other)
  Sender: FDA-Public Use
  Company Number: JP-DSJP-DSJ-2023-150105

PATIENT
  Age: 68 Year
  Sex: Female
  Weight: 52.8 kg

DRUGS (3)
  1. ENHERTU [Suspect]
     Active Substance: FAM-TRASTUZUMAB DERUXTECAN-NXKI
     Indication: HER2 positive gastric cancer
     Dosage: 5.4 MG/KG, ONCE EVERY 3 WK
     Route: 041
     Dates: start: 20230907, end: 20230907
  2. ENHERTU [Suspect]
     Active Substance: FAM-TRASTUZUMAB DERUXTECAN-NXKI
     Dosage: 4.4 MG/KG, ONCE EVERY 3 WK
     Route: 041
     Dates: start: 20230928, end: 20230928
  3. ENHERTU [Suspect]
     Active Substance: FAM-TRASTUZUMAB DERUXTECAN-NXKI
     Dosage: 4.4 MG/KG, ONCE EVERY 3 WK
     Route: 041
     Dates: start: 20231018, end: 20231018

REACTIONS (9)
  - Disseminated intravascular coagulation [Fatal]
  - Blood creatinine increased [Fatal]
  - Acute kidney injury [Fatal]
  - Cardiac failure acute [Fatal]
  - White blood cell count decreased [Recovered/Resolved]
  - Stomatitis [Not Recovered/Not Resolved]
  - Myelosuppression [Unknown]
  - Decreased appetite [Recovered/Resolved]
  - Underdose [Unknown]

NARRATIVE: CASE EVENT DATE: 20230907
